FAERS Safety Report 4615872-5 (Version None)
Quarter: 2005Q1

REPORT INFORMATION
  Report Type: 
  Country: None (occurrence: None)
  Receive Date: 20050321
  Receipt Date: 20050308
  Transmission Date: 20050727
  Serious: Yes (Hospitalization)
  Sender: FDA-Public Use
  Company Number: GXKR2005CH00720

PATIENT
  Age: 87 Year
  Sex: Male

DRUGS (9)
  1. AMOXICILLIN + CLAVULANATE POTASSIUM (NGX) (AMOXICILLIN, CLAVULANATE) [Suspect]
     Indication: BRONCHITIS ACUTE
     Dosage: ORAL
     Route: 048
     Dates: start: 20050209, end: 20050213
  2. COAPROVEL (HYDROCHLOROTHIAZIDE, IRBESARTAN) [Suspect]
  3. CLOPIDOGREL BISULFATE [Concomitant]
  4. METOPROLOL TARTRATE [Concomitant]
  5. AMIODARONE HCL [Concomitant]
  6. TOLTERODINE TARTRATE [Concomitant]
  7. METFORMIN HCL [Concomitant]
  8. SIMVASTATIN [Concomitant]
  9. INSULIN [Concomitant]

REACTIONS (5)
  - ENCEPHALITIS [None]
  - GENERAL PHYSICAL HEALTH DETERIORATION [None]
  - INAPPROPRIATE ANTIDIURETIC HORMONE SECRETION [None]
  - MENINGITIS ASEPTIC [None]
  - URINARY INCONTINENCE [None]
